FAERS Safety Report 25969362 (Version 1)
Quarter: 2025Q4

REPORT INFORMATION
  Report Type: Spontaneous
  Country: US (occurrence: US)
  Receive Date: 20251028
  Receipt Date: 20251028
  Transmission Date: 20260118
  Serious: Yes (Hospitalization)
  Sender: ABBVIE
  Company Number: US-ABBVIE-6521273

PATIENT
  Age: 63 Year
  Sex: Female
  Weight: 55.3 kg

DRUGS (2)
  1. VENETOCLAX [Suspect]
     Active Substance: VENETOCLAX
     Indication: Acute myeloid leukaemia (in remission)
     Dosage: 28 DAY CYCLE
     Route: 048
     Dates: start: 20230911, end: 20231010
  2. DECITABINE [Suspect]
     Active Substance: DECITABINE
     Indication: Acute myeloid leukaemia (in remission)
     Dosage: STRENGTH: 20MG/M2, D1-5 28 DAY CYCLE
     Route: 042
     Dates: start: 20230911, end: 20231010

REACTIONS (1)
  - Febrile neutropenia [Recovered/Resolved]

NARRATIVE: CASE EVENT DATE: 20231019
